FAERS Safety Report 12457365 (Version 5)
Quarter: 2017Q1

REPORT INFORMATION
  Report Type: Report from Study
  Country: JP (occurrence: JP)
  Receive Date: 20160610
  Receipt Date: 20170306
  Transmission Date: 20170428
  Serious: Yes (Life-Threatening, Hospitalization, Other)
  Sender: FDA-Public Use
  Company Number: JP-BRISTOL-MYERS SQUIBB COMPANY-BMS-2016-045429

PATIENT
  Age: 59 Year
  Sex: Female
  Weight: 41.7 kg

DRUGS (6)
  1. CARBOCISTEINE [Concomitant]
     Active Substance: CARBOCYSTEINE
     Indication: CHRONIC SINUSITIS
     Dosage: 1500 MG, QD
     Route: 065
     Dates: start: 20150114
  2. PANTOSIN [Concomitant]
     Active Substance: PANTETHINE
     Indication: ECZEMA
     Dosage: 1 G, QD
     Route: 065
     Dates: start: 20140904
  3. MAGNESIUM OXIDE. [Concomitant]
     Active Substance: MAGNESIUM OXIDE
     Indication: CONSTIPATION
     Dosage: 1 G, QD
     Route: 065
     Dates: start: 20150904
  4. BYAKKOKANINJINTO [Concomitant]
     Indication: THIRST
     Dosage: 1 DF, QD
     Route: 065
     Dates: start: 20150322
  5. IPILIMUMAB [Suspect]
     Active Substance: IPILIMUMAB
     Indication: MALIGNANT MELANOMA
     Dosage: 150 MG, QWK
     Route: 041
     Dates: start: 20160510, end: 20161202
  6. PRIMPERAN [Concomitant]
     Active Substance: METOCLOPRAMIDE HYDROCHLORIDE
     Indication: VOMITING
     Dosage: 15 MG, QD
     Route: 065
     Dates: start: 20151125

REACTIONS (6)
  - Tumour haemorrhage [Recovered/Resolved]
  - Vomiting [Recovered/Resolved]
  - Packed red blood cell transfusion [Unknown]
  - Enteritis [Recovered/Resolved]
  - Therapeutic embolisation [Unknown]
  - Anaemia [Recovered/Resolved]

NARRATIVE: CASE EVENT DATE: 20160522
